FAERS Safety Report 4433222-4 (Version None)
Quarter: 2004Q3

REPORT INFORMATION
  Report Type: 
  Country: None (occurrence: None)
  Receive Date: 20040823
  Receipt Date: 20040730
  Transmission Date: 20050211
  Serious: No
  Sender: FDA-Public Use
  Company Number: A01200403649

PATIENT
  Age: 56 Year
  Sex: Male

DRUGS (6)
  1. XATRAL - (ALFUZOSIN) - TABLET PR - 10 MG [Suspect]
     Dosage: ORAL
     Route: 048
     Dates: start: 20040706, end: 20040726
  2. HYTRIN [Concomitant]
  3. AVAPRO [Concomitant]
  4. LOZIDE (INDAPAMIDE HEMIHYDRATE) [Concomitant]
  5. TRANDATE [Concomitant]
  6. ASAPHEN (ACETYLSALICYLIC ACID) [Concomitant]

REACTIONS (3)
  - BLOOD CREATINE PHOSPHOKINASE INCREASED [None]
  - MYALGIA [None]
  - MYOSITIS [None]
